FAERS Safety Report 7028616-7 (Version None)
Quarter: 2010Q4

REPORT INFORMATION
  Report Type: 
  Country: None (occurrence: None)
  Receive Date: 20101001
  Receipt Date: 20101001
  Transmission Date: 20110411
  Serious: No
  Sender: FDA-Public Use
  Company Number: None

PATIENT
  Age: 30 Year
  Sex: Female
  Weight: 104.3273 kg

DRUGS (3)
  1. CITALOPRAM HYDROBROMIDE [Suspect]
     Indication: ANXIETY
     Dosage: 1 TABLET BY MOUTH DAILY PO
     Route: 048
     Dates: start: 20100916, end: 20100922
  2. CITALOPRAM HYDROBROMIDE [Suspect]
     Indication: DEPRESSION
     Dosage: 1 TABLET BY MOUTH DAILY PO
     Route: 048
     Dates: start: 20100916, end: 20100922
  3. CITALOPRAM HYDROBROMIDE [Suspect]
     Indication: OBSESSIVE-COMPULSIVE DISORDER
     Dosage: 1 TABLET BY MOUTH DAILY PO
     Route: 048
     Dates: start: 20100916, end: 20100922

REACTIONS (15)
  - AMENORRHOEA [None]
  - ASTHENIA [None]
  - COORDINATION ABNORMAL [None]
  - DISTURBANCE IN ATTENTION [None]
  - HALLUCINATION [None]
  - HEADACHE [None]
  - HYPERHIDROSIS [None]
  - HYPERSENSITIVITY [None]
  - INSOMNIA [None]
  - IRRITABILITY [None]
  - MYALGIA [None]
  - RESTLESSNESS [None]
  - SOMNOLENCE [None]
  - TREMOR [None]
  - VISUAL IMPAIRMENT [None]
